FAERS Safety Report 6257983-7 (Version None)
Quarter: 2009Q3

REPORT INFORMATION
  Report Type: 
  Country: None (occurrence: None)
  Receive Date: 20090702
  Receipt Date: 20090617
  Transmission Date: 20100115
  Serious: Yes (Other)
  Sender: FDA-Public Use
  Company Number: 8048110

PATIENT
  Sex: Female

DRUGS (2)
  1. KEPPRA [Suspect]
  2. TOPIRAMATE [Concomitant]

REACTIONS (1)
  - STATUS EPILEPTICUS [None]
